FAERS Safety Report 12624345 (Version 1)
Quarter: 2016Q3

REPORT INFORMATION
  Report Type: Spontaneous
  Country: DK (occurrence: DK)
  Receive Date: 20160805
  Receipt Date: 20160805
  Transmission Date: 20161109
  Serious: Yes (Hospitalization)
  Sender: FDA-Public Use
  Company Number: ES-ASTRAZENECA-2015SE48535

PATIENT
  Age: 908 Month
  Sex: Male

DRUGS (13)
  1. PANTOPRAZOL ^NYCOMED^ [Concomitant]
     Indication: ULCER
     Dosage: PANTOPRAZOL TAKEDA
  2. ALENDRONAT ^ARROW^ [Concomitant]
     Indication: OSTEOPOROSIS
  3. SERETIDE [Concomitant]
     Active Substance: FLUTICASONE PROPIONATE\SALMETEROL XINAFOATE
     Indication: CHRONIC OBSTRUCTIVE PULMONARY DISEASE
  4. CLOPIDOGREL ^ACTAVIS^ [Concomitant]
     Indication: THROMBOSIS PROPHYLAXIS
  5. MAGNESIA ^DAK^ [Concomitant]
     Indication: CONSTIPATION
  6. GLYCERYL TRINITRATE [Concomitant]
     Active Substance: NITROGLYCERIN
     Indication: CHEST PAIN
     Dosage: AS REQUIRED
  7. EKLIRA GENUAIR [Suspect]
     Active Substance: ACLIDINIUM BROMIDE
     Indication: CHRONIC OBSTRUCTIVE PULMONARY DISEASE
     Dosage: 322 MICROGRAMS INHALATION POWDER
     Route: 055
     Dates: start: 20140324, end: 20140410
  8. PINEX [Concomitant]
     Active Substance: ACETAMINOPHEN
     Indication: PAIN
  9. TRAMADOL RETARD ^ACTAVIS^ [Concomitant]
     Indication: PAIN
  10. RAMIPRIL ^STADA^ [Concomitant]
     Indication: CARDIAC DISORDER
  11. MOVICOL [Concomitant]
     Active Substance: POLYETHYLENE GLYCOL 3350\POTASSIUM CHLORIDE\SODIUM BICARBONATE\SODIUM CHLORIDE
     Indication: CONSTIPATION
     Dosage: AS REQUIRED
  12. PANTOPRAZOL ^NYCOMED^ [Concomitant]
     Indication: ULCER
     Dosage: NYCOMED
  13. OXAPAX [Concomitant]
     Active Substance: OXAZEPAM
     Indication: ANXIETY
     Dosage: AS REQUIRED

REACTIONS (2)
  - Dyspnoea [Unknown]
  - Flatulence [Recovered/Resolved]

NARRATIVE: CASE EVENT DATE: 201404
